FAERS Safety Report 4361148-3 (Version None)
Quarter: 2004Q2

REPORT INFORMATION
  Report Type: 
  Country: None (occurrence: None)
  Receive Date: 20040511
  Receipt Date: 20031008
  Transmission Date: 20050107
  Serious: Yes (Hospitalization)
  Sender: FDA-Public Use
  Company Number: USA031049390

PATIENT
  Sex: Female

DRUGS (9)
  1. PROZAC WEEKLY [Suspect]
     Dosage: 90 MG/DAY
  2. EPOGEN [Concomitant]
  3. PREDNISONE [Concomitant]
  4. PREVACID [Concomitant]
  5. ZOFRAN [Concomitant]
  6. ACETAMINOPHEN AND HYDROCODONE BITARTRATE [Concomitant]
  7. CALCIUM CARBONATE [Concomitant]
  8. CELLCEPT [Concomitant]
  9. LABETALOL HCL [Concomitant]

REACTIONS (1)
  - ACCIDENTAL OVERDOSE [None]
